FAERS Safety Report 9331393 (Version 2)
Quarter: 2013Q2

REPORT INFORMATION
  Report Type: Spontaneous
  Country: JP (occurrence: JP)
  Receive Date: 20130605
  Receipt Date: 20130607
  Transmission Date: 20140414
  Serious: No
  Sender: FDA-Public Use
  Company Number: JP-B.I. PHARMACEUTICALS,INC./RIDGEFIELD-2013-BI-15715NB

PATIENT
  Age: 88 Year
  Sex: Female

DRUGS (1)
  1. PRAZAXA [Suspect]
     Indication: EMBOLIC STROKE

REACTIONS (1)
  - Off label use [Unknown]
